FAERS Safety Report 9874435 (Version 2)
Quarter: 2014Q1

REPORT INFORMATION
  Report Type: Report from Study
  Country: IT (occurrence: IT)
  Receive Date: 20140206
  Receipt Date: 20140206
  Transmission Date: 20141002
  Serious: Yes (Other)
  Sender: FDA-Public Use
  Company Number: IT-BRISTOL-MYERS SQUIBB COMPANY-19947688

PATIENT
  Age: 77 Year
  Sex: Female

DRUGS (9)
  1. PACLITAXEL [Suspect]
     Indication: BREAST CANCER
     Route: 065
  2. PERTUZUMAB [Suspect]
     Indication: BREAST CANCER
     Dosage: 600 MG 1 IN 1 WEEK
     Route: 042
     Dates: start: 20131203
  3. TRASTUZUMAB [Suspect]
     Indication: BREAST CANCER
     Route: 042
     Dates: start: 20131203
  4. DOCETAXEL [Suspect]
     Indication: HER-2 POSITIVE BREAST CANCER
     Dosage: 03DEC13,30MG,1 IN 1 CYCLICAL,IV
     Route: 042
     Dates: start: 20131203
  5. LOSARTAN POTASSIUM [Concomitant]
     Dates: start: 2003
  6. FILGRASTIM [Concomitant]
     Dosage: TRADE NAME:ZARZIO,8 DAYS
     Dates: start: 20131224, end: 20131231
  7. HYDROCHLOROTHIAZIDE [Concomitant]
     Route: 048
  8. ONDANSETRON HCL [Concomitant]
     Route: 042
  9. DECADRON [Concomitant]
     Route: 042

REACTIONS (1)
  - Neutropenia [Recovered/Resolved]
